FAERS Safety Report 11006317 (Version 1)
Quarter: 2015Q2

REPORT INFORMATION
  Report Type: Report from Study
  Country: DE (occurrence: DE)
  Receive Date: 20150409
  Receipt Date: 20150409
  Transmission Date: 20150821
  Serious: Yes (Death, Other)
  Sender: FDA-Public Use
  Company Number: DE-MYLANLABS-2015M1011614

PATIENT

DRUGS (4)
  1. DILTIAZEM [Concomitant]
     Active Substance: DILTIAZEM
     Route: 065
  2. HYDROXYZINE [Suspect]
     Active Substance: HYDROXYZINE\HYDROXYZINE HYDROCHLORIDE
     Route: 050
  3. CAFFEINE. [Concomitant]
     Active Substance: CAFFEINE
     Route: 065
  4. LEVAMISOLE [Suspect]
     Active Substance: LEVAMISOLE
     Route: 050

REACTIONS (5)
  - Death [Fatal]
  - Vomiting [Unknown]
  - Muscle spasms [Unknown]
  - Hearing impaired [Unknown]
  - Delirium [Unknown]
